FAERS Safety Report 21401366 (Version 1)
Quarter: 2022Q4

REPORT INFORMATION
  Report Type: Spontaneous
  Country: US (occurrence: US)
  Receive Date: 20221003
  Receipt Date: 20221003
  Transmission Date: 20230112
  Serious: No
  Sender: FDA-Public Use
  Company Number: US-AUROBINDO-AUR-APL-2022-031776

PATIENT
  Age: 29 Year
  Sex: Female
  Weight: 83 kg

DRUGS (1)
  1. SUMATRIPTAN [Suspect]
     Active Substance: SUMATRIPTAN
     Indication: Migraine
     Dosage: 100 MILLIGRAM, ONCE A DAY
     Route: 048
     Dates: start: 20220803

REACTIONS (6)
  - Nausea [Unknown]
  - Paraesthesia [Unknown]
  - Hot flush [Unknown]
  - Pain in jaw [Unknown]
  - Neck pain [Unknown]
  - Chills [Unknown]

NARRATIVE: CASE EVENT DATE: 20220803
